FAERS Safety Report 17083105 (Version 1)
Quarter: 2019Q4

REPORT INFORMATION
  Report Type: Spontaneous
  Country: US (occurrence: US)
  Receive Date: 20191127
  Receipt Date: 20191127
  Transmission Date: 20200122
  Serious: Yes (Hospitalization)
  Sender: FDA-Public Use
  Company Number: US-PROCTER+GAMBLE-GS19125111

PATIENT

DRUGS (1)
  1. VICKS ZZZQUIL PURE ZZZS (MELATONIN) [Suspect]
     Active Substance: MELATONIN
     Route: 048

REACTIONS (3)
  - Insomnia [Recovered/Resolved]
  - Hallucination, auditory [Recovered/Resolved]
  - Nightmare [Recovered/Resolved]
